FAERS Safety Report 4359946-5 (Version None)
Quarter: 2004Q2

REPORT INFORMATION
  Report Type: 
  Country: None (occurrence: None)
  Receive Date: 20040513
  Receipt Date: 20040504
  Transmission Date: 20050107
  Serious: No
  Sender: FDA-Public Use
  Company Number: 2004UW04562

PATIENT
  Age: 70 Year
  Sex: Male
  Weight: 95.2554 kg

DRUGS (5)
  1. TOPROL-XL [Suspect]
     Dosage: 50 MG QD PO
     Route: 048
  2. NIACIN [Suspect]
     Indication: BLOOD CHOLESTEROL
     Dosage: 1200 MG PO
     Route: 048
  3. NIACIN [Suspect]
     Indication: BLOOD CHOLESTEROL
     Dosage: 500 MG BID PO
     Route: 048
  4. NIACIN [Suspect]
     Indication: BLOOD CHOLESTEROL
     Dosage: 500 MG TID PO
     Route: 048
  5. ASPIRIN [Concomitant]

REACTIONS (5)
  - ARRHYTHMIA [None]
  - CARDIAC FLUTTER [None]
  - DRUG INTERACTION [None]
  - HEART RATE INCREASED [None]
  - PALPITATIONS [None]
